FAERS Safety Report 9800022 (Version 2)
Quarter: 2014Q1

REPORT INFORMATION
  Report Type: Spontaneous
  Country: US (occurrence: US)
  Receive Date: 20140106
  Receipt Date: 20140106
  Transmission Date: 20141002
  Serious: No
  Sender: FDA-Public Use
  Company Number: US-GILEAD-2010-0030793

PATIENT
  Sex: Female
  Weight: 86.18 kg

DRUGS (14)
  1. LETAIRIS [Suspect]
     Indication: PULMONARY ARTERIAL HYPERTENSION
     Route: 048
     Dates: start: 20100715
  2. REVATIO [Concomitant]
     Indication: PULMONARY ARTERIAL HYPERTENSION
     Route: 048
     Dates: start: 20100303
  3. MYCOPHENOLATE [Concomitant]
     Route: 048
  4. PREDNISONE [Concomitant]
     Route: 048
  5. FUROSEMIDE [Concomitant]
     Route: 048
  6. TRIAMTERENE-HCTZ [Concomitant]
     Route: 048
  7. METOPROLOL [Concomitant]
     Route: 048
  8. QUINAPRIL [Concomitant]
     Route: 048
  9. BAYER ASPIRIN [Concomitant]
     Route: 048
  10. HUMALOG [Concomitant]
     Route: 058
  11. HUMULIN N [Concomitant]
     Route: 058
  12. LEVOTHYROXINE [Concomitant]
     Route: 048
  13. SYNTHROID [Concomitant]
     Route: 048
  14. LIPITOR [Concomitant]
     Route: 048

REACTIONS (1)
  - Urticaria [Not Recovered/Not Resolved]
